FAERS Safety Report 21378100 (Version 1)
Quarter: 2022Q3

REPORT INFORMATION
  Report Type: Spontaneous
  Country: JP (occurrence: JP)
  Receive Date: 20220926
  Receipt Date: 20220926
  Transmission Date: 20221027
  Serious: Yes (Death, Other)
  Sender: FDA-Public Use
  Company Number: JP-BRISTOL-MYERS SQUIBB COMPANY-2022-107406

PATIENT
  Age: 7 Decade
  Sex: Female

DRUGS (1)
  1. BREYANZI [Suspect]
     Active Substance: LISOCABTAGENE MARALEUCEL
     Indication: Product used for unknown indication
     Route: 065
     Dates: start: 20220726

REACTIONS (3)
  - Malignant neoplasm progression [Fatal]
  - Pyrexia [Unknown]
  - Cytokine release syndrome [Unknown]
